FAERS Safety Report 6483256-3 (Version None)
Quarter: 2009Q4

REPORT INFORMATION
  Report Type: 
  Country: None (occurrence: None)
  Receive Date: 20091209
  Receipt Date: 20091201
  Transmission Date: 20100525
  Serious: Yes (Hospitalization)
  Sender: FDA-Public Use
  Company Number: US-ELI_LILLY_AND_COMPANY-US200911001549

PATIENT
  Age: 81 Year
  Sex: Female

DRUGS (4)
  1. FORTEO [Suspect]
     Indication: OSTEOPOROSIS
     Dosage: 20 UG, DAILY (1/D)
  2. FOSAMAX [Concomitant]
     Dosage: 70 MG, WEEKLY (1/W)
  3. CALCIUM WITH VITAMIN D [Concomitant]
     Dates: start: 20090101
  4. ADALAT CC [Concomitant]
     Dosage: 30 MG, UNK

REACTIONS (1)
  - PANCREATITIS ACUTE [None]
